FAERS Safety Report 19756687 (Version 4)
Quarter: 2022Q1

REPORT INFORMATION
  Report Type: Report from Study
  Country: DE (occurrence: DE)
  Receive Date: 20210827
  Receipt Date: 20220315
  Transmission Date: 20220423
  Serious: Yes (Other)
  Sender: FDA-Public Use
  Company Number: DE-002147023-NVSC2019DE002556

PATIENT
  Sex: Female
  Weight: 85 kg

DRUGS (4)
  1. LETROZOLE [Suspect]
     Active Substance: LETROZOLE
     Indication: Breast cancer metastatic
     Dosage: 2.5 MILLIGRAM, QD, (2.5 MG, QD)
     Route: 048
     Dates: start: 20190906, end: 20210726
  2. KISQALI [Suspect]
     Active Substance: RIBOCICLIB
     Indication: Breast cancer metastatic
     Dosage: 600 MILLIGRAM, QD (SCHEME 21 DAYS INTAKE)
     Route: 048
     Dates: start: 20190927, end: 20190927
  3. KISQALI [Suspect]
     Active Substance: RIBOCICLIB
     Dosage: 600 MILLIGRAM, QD (SCHEMA 21 DAYS INTAKE)
     Route: 048
     Dates: start: 20191007, end: 20191126
  4. KISQALI [Suspect]
     Active Substance: RIBOCICLIB
     Dosage: 600 MILLIGRAM (SCHEMA 21 DAYS INTAKE)
     Route: 048
     Dates: start: 20200110, end: 20210726

REACTIONS (13)
  - Hepatic enzyme increased [Not Recovered/Not Resolved]
  - Thrombosis [Recovered/Resolved]
  - Muscular weakness [Recovered/Resolved]
  - Onychoclasis [Not Recovered/Not Resolved]
  - Nasopharyngitis [Recovered/Resolved]
  - Haemoptysis [Recovered/Resolved]
  - Stress [Recovered/Resolved]
  - Paraesthesia [Not Recovered/Not Resolved]
  - Nausea [Recovered/Resolved]
  - Depression [Recovered/Resolved]
  - Cough [Recovered/Resolved]
  - Alopecia [Not Recovered/Not Resolved]
  - Rash macular [Not Recovered/Not Resolved]

NARRATIVE: CASE EVENT DATE: 20190927
